FAERS Safety Report 22331829 (Version 1)
Quarter: 2023Q2

REPORT INFORMATION
  Report Type: Spontaneous
  Country: IT (occurrence: IT)
  Receive Date: 20230517
  Receipt Date: 20230517
  Transmission Date: 20230721
  Serious: Yes (Death, Hospitalization, Other)
  Sender: FDA-Public Use
  Company Number: IT-AMGEN-ITASP2023081387

PATIENT

DRUGS (7)
  1. ADALIMUMAB [Suspect]
     Active Substance: ADALIMUMAB
     Indication: Pustular psoriasis
     Dosage: UNK
     Route: 065
  2. IXEKIZUMAB [Concomitant]
     Active Substance: IXEKIZUMAB
     Indication: Pustular psoriasis
  3. RISANKIZUMAB RZAA [Concomitant]
     Indication: Pustular psoriasis
  4. SECUKINUMAB [Concomitant]
     Active Substance: SECUKINUMAB
     Indication: Pustular psoriasis
  5. GUSELKUMAB [Concomitant]
     Active Substance: GUSELKUMAB
     Indication: Pustular psoriasis
  6. TILDRAKIZUMAB [Concomitant]
     Active Substance: TILDRAKIZUMAB
     Indication: Pustular psoriasis
  7. BRODALUMAB [Concomitant]
     Active Substance: BRODALUMAB
     Indication: Pustular psoriasis

REACTIONS (13)
  - COVID-19 pneumonia [Fatal]
  - Infection [Unknown]
  - Upper respiratory tract infection [Unknown]
  - Hepatitis [Unknown]
  - Stress [Unknown]
  - Maternal exposure during pregnancy [Unknown]
  - Leukonychia [Unknown]
  - Onycholysis [Unknown]
  - Tongue geographic [Unknown]
  - Leukocytosis [Unknown]
  - Hypocalcaemia [Unknown]
  - Pustular psoriasis [Unknown]
  - Pyrexia [Unknown]
